FAERS Safety Report 10040291 (Version 2)
Quarter: 2014Q1

REPORT INFORMATION
  Report Type: Spontaneous
  Country: IT (occurrence: IT)
  Receive Date: 20140327
  Receipt Date: 20140327
  Transmission Date: 20141002
  Serious: Yes (Other)
  Sender: FDA-Public Use
  Company Number: PHHY2014IT009149

PATIENT
  Sex: Male

DRUGS (5)
  1. IRINOTECAN [Suspect]
     Indication: CHEMOTHERAPY
     Dosage: 320 MG, UNK
     Route: 042
     Dates: start: 20121223, end: 20130401
  2. ERBITUX [Suspect]
     Indication: CHEMOTHERAPY
     Dosage: 900 MG, UNK
     Route: 042
     Dates: start: 20121223, end: 20130401
  3. FLUOROURACIL [Suspect]
     Indication: CHEMOTHERAPY
     Dosage: 710 MG, UNK
     Route: 042
     Dates: start: 20121223, end: 20130401
  4. FLUOROURACIL [Suspect]
     Dosage: 4320 ML, UNK
     Route: 042
     Dates: start: 20121223, end: 20130401
  5. LEVOFOLINIC ACID [Concomitant]
     Indication: CHEMOTHERAPY
     Dosage: 360 MG, UNK
     Dates: start: 20121223, end: 20130401

REACTIONS (1)
  - Atrial fibrillation [Unknown]
